FAERS Safety Report 21527113 (Version 4)
Quarter: 2023Q2

REPORT INFORMATION
  Report Type: Spontaneous
  Country: CA (occurrence: None)
  Receive Date: 20221031
  Receipt Date: 20230517
  Transmission Date: 20230722
  Serious: Yes (Hospitalization)
  Sender: FDA-Public Use
  Company Number: CA-ROCHE-3208481

PATIENT
  Age: 59 Year
  Sex: Female

DRUGS (10)
  1. RITUXIMAB [Suspect]
     Active Substance: RITUXIMAB
     Indication: Granulomatosis with polyangiitis
     Route: 042
  2. RITUXIMAB [Suspect]
     Active Substance: RITUXIMAB
     Indication: Anti-neutrophil cytoplasmic antibody positive vasculitis
     Dosage: FORM OF ADMIN TEXT :CONCENTRATE FOR SOLUTION FOR INFUSION
     Route: 042
  3. RITUXIMAB [Suspect]
     Active Substance: RITUXIMAB
     Dosage: FORM OF ADMIN TEXT :CONCENTRATE FOR SOLUTION FOR INFUSION
     Route: 042
  4. RITUXIMAB [Suspect]
     Active Substance: RITUXIMAB
     Dosage: FORM OF ADMIN TEXT :CONCENTRATE FOR SOLUTION FOR INFUSION
     Route: 042
  5. RITUXIMAB [Suspect]
     Active Substance: RITUXIMAB
     Dosage: FORM OF ADMIN TEXT :CONCENTRATE FOR SOLUTION FOR INFUSION
     Route: 042
  6. RITUXIMAB [Suspect]
     Active Substance: RITUXIMAB
     Dosage: FORM OF ADMIN TEXT :CONCENTRATE FOR SOLUTION FOR INFUSION
     Route: 042
  7. BENADRYL [Suspect]
     Active Substance: DIPHENHYDRAMINE HYDROCHLORIDE
     Indication: Product used for unknown indication
     Route: 065
  8. HYDROCORTISONE [Concomitant]
     Active Substance: HYDROCORTISONE
     Indication: Product used for unknown indication
     Route: 042
  9. PREDNISONE [Concomitant]
     Active Substance: PREDNISONE
     Indication: Product used for unknown indication
     Route: 048
  10. HYDROCORTISONE SODIUM SUCCINATE [Concomitant]
     Active Substance: HYDROCORTISONE SODIUM SUCCINATE
     Route: 042

REACTIONS (25)
  - Back pain [Recovered/Resolved]
  - Decreased appetite [Recovered/Resolved]
  - Diarrhoea [Recovered/Resolved]
  - Disturbance in attention [Recovered/Resolved]
  - Drug hypersensitivity [Recovered/Resolved]
  - Dyspnoea [Recovered/Resolved]
  - Facial pain [Recovered/Resolved]
  - Feeling abnormal [Recovered/Resolved]
  - Headache [Recovered/Resolved]
  - Hyperhidrosis [Recovered/Resolved]
  - Hypoacusis [Recovered/Resolved]
  - Hypothermia [Recovered/Resolved]
  - Nausea [Recovered/Resolved]
  - Pain [Recovered/Resolved]
  - Wheezing [Recovered/Resolved]
  - Enteritis infectious [Recovered/Resolved]
  - Arthralgia [Recovered/Resolved]
  - Dehydration [Recovered/Resolved]
  - Latent tuberculosis [Recovered/Resolved]
  - Muscle spasms [Recovered/Resolved]
  - Seasonal allergy [Recovered/Resolved]
  - Swelling [Recovered/Resolved]
  - Balance disorder [Recovered/Resolved]
  - Fatigue [Recovered/Resolved]
  - Muscular weakness [Recovered/Resolved]
